FAERS Safety Report 13197924 (Version 1)
Quarter: 2017Q1

REPORT INFORMATION
  Report Type: Report from Study
  Country: None (occurrence: PR)
  Receive Date: 20170208
  Receipt Date: 20170208
  Transmission Date: 20170428
  Serious: Yes (Other)
  Sender: FDA-Public Use
  Company Number: PR-ABBVIE-17K-131-1861584-00

PATIENT
  Sex: Female

DRUGS (1)
  1. HUMIRA [Suspect]
     Active Substance: ADALIMUMAB
     Indication: RHEUMATOID ARTHRITIS
     Route: 058
     Dates: start: 20160816

REACTIONS (6)
  - Vaginal haemorrhage [Not Recovered/Not Resolved]
  - Hysterectomy [Unknown]
  - Oophorectomy [Unknown]
  - Arthralgia [Not Recovered/Not Resolved]
  - Reproductive tract disorder [Unknown]
  - Pain in extremity [Not Recovered/Not Resolved]
